FAERS Safety Report 12575714 (Version 3)
Quarter: 2016Q4

REPORT INFORMATION
  Report Type: Spontaneous
  Country: US (occurrence: US)
  Receive Date: 20160720
  Receipt Date: 20161223
  Transmission Date: 20170207
  Serious: Yes (Other)
  Sender: FDA-Public Use
  Company Number: PHEH2016US017873

PATIENT
  Sex: Female

DRUGS (1)
  1. AFINITOR [Suspect]
     Active Substance: EVEROLIMUS
     Indication: NEUROENDOCRINE CARCINOMA METASTATIC
     Dosage: UNK
     Route: 065
     Dates: start: 20160427

REACTIONS (17)
  - Dental caries [Not Recovered/Not Resolved]
  - Tooth disorder [Unknown]
  - Periodontal disease [Unknown]
  - Oral pain [Unknown]
  - Toothache [Unknown]
  - Feeding disorder [Unknown]
  - Malaise [Unknown]
  - Gingival disorder [Unknown]
  - Rash pruritic [Recovered/Resolved]
  - Bone abscess [Unknown]
  - Dry mouth [Unknown]
  - Stomatitis [Unknown]
  - Glossodynia [Unknown]
  - Weight decreased [Unknown]
  - Noninfective gingivitis [Unknown]
  - Tooth loss [Unknown]
  - Depression [Unknown]
